FAERS Safety Report 25225258 (Version 1)
Quarter: 2025Q2

REPORT INFORMATION
  Report Type: Spontaneous
  Country: US (occurrence: None)
  Receive Date: 20250422
  Receipt Date: 20250422
  Transmission Date: 20250716
  Serious: Yes (Life-Threatening, Hospitalization)
  Sender: FDA-CTU
  Company Number: None

PATIENT
  Age: 78 Year
  Sex: Male

DRUGS (2)
  1. CABOMETYX [Suspect]
     Active Substance: CABOZANTINIB S-MALATE
     Indication: Renal cell carcinoma
     Dosage: 40 MG DAILY ORAL ?
     Route: 048
     Dates: start: 20241202, end: 20250225
  2. NIVOLUMAB [Concomitant]
     Active Substance: NIVOLUMAB
     Dates: start: 20241101, end: 20250117

REACTIONS (10)
  - Intestinal perforation [None]
  - Diverticular perforation [None]
  - Pneumoperitoneum [None]
  - Abdominal infection [None]
  - Delirium [None]
  - Anaemia [None]
  - Failure to thrive [None]
  - Acute kidney injury [None]
  - Liver function test increased [None]
  - Toxicity to various agents [None]

NARRATIVE: CASE EVENT DATE: 20250225
